FAERS Safety Report 15813086 (Version 1)
Quarter: 2019Q1

REPORT INFORMATION
  Report Type: Spontaneous
  Country: US (occurrence: US)
  Receive Date: 20190107
  Receipt Date: 20190107
  Transmission Date: 20190417
  Serious: No
  Sender: FDA-Public Use
  Company Number: None

PATIENT

DRUGS (2)
  1. VASOPRESSIN INJECTION [Suspect]
     Active Substance: VASOPRESSIN
  2. HEPARIN [Suspect]
     Active Substance: HEPARIN SODIUM

REACTIONS (4)
  - Product appearance confusion [None]
  - Product packaging confusion [None]
  - Wrong product administered [None]
  - Product use complaint [None]
